FAERS Safety Report 23237078 (Version 1)
Quarter: 2023Q4

REPORT INFORMATION
  Report Type: Spontaneous
  Country: CA (occurrence: CA)
  Receive Date: 20231128
  Receipt Date: 20231128
  Transmission Date: 20240110
  Serious: Yes (Hospitalization, Other)
  Sender: FDA-Public Use
  Company Number: CA-AstraZeneca-2023A263488

PATIENT
  Age: 77 Year
  Sex: Female

DRUGS (1)
  1. TRASTUZUMAB DERUXTECAN [Suspect]
     Active Substance: TRASTUZUMAB DERUXTECAN
     Indication: Product used for unknown indication
     Dosage: 367 MG, ONCE EVERY 3 WK
     Route: 042

REACTIONS (8)
  - Abdominal distension [Unknown]
  - Ascites [Unknown]
  - Blood sodium decreased [Unknown]
  - Crepitations [Unknown]
  - Pain [Unknown]
  - Dyspnoea [Unknown]
  - Pyrexia [Unknown]
  - Inappropriate schedule of product administration [Unknown]
